FAERS Safety Report 14121242 (Version 4)
Quarter: 2017Q4

REPORT INFORMATION
  Report Type: Spontaneous
  Country: TR (occurrence: TR)
  Receive Date: 20171024
  Receipt Date: 20171128
  Transmission Date: 20180321
  Serious: Yes (Other)
  Sender: FDA-Public Use
  Company Number: TR-PFIZER INC-2017455368

PATIENT
  Age: 49 Year
  Sex: Female

DRUGS (6)
  1. ADVIL [Suspect]
     Active Substance: IBUPROFEN
     Indication: NASOPHARYNGITIS
  2. UROCIT [Concomitant]
  3. BELOC /00030002/ [Concomitant]
     Active Substance: PROPRANOLOL HYDROCHLORIDE
     Indication: HYPERTENSION
  4. ADVIL [Suspect]
     Active Substance: IBUPROFEN
     Indication: PAIN
     Dosage: 200 MG, 2-3 TIMES A DAY
  5. ADVIL [Suspect]
     Active Substance: IBUPROFEN
     Indication: INFLUENZA
  6. ADALAT [Concomitant]
     Active Substance: NIFEDIPINE
     Indication: HYPERTENSION

REACTIONS (5)
  - Condition aggravated [Recovered/Resolved]
  - Blood creatinine increased [Recovered/Resolved]
  - Renal impairment [Recovered/Resolved]
  - Blood pressure increased [Recovered/Resolved]
  - Blood urea increased [Recovered/Resolved]

NARRATIVE: CASE EVENT DATE: 2017
